FAERS Safety Report 9508071 (Version 1)
Quarter: 2013Q3

REPORT INFORMATION
  Report Type: Spontaneous
  Country: GB (occurrence: GB)
  Receive Date: 20130909
  Receipt Date: 20130909
  Transmission Date: 20140515
  Serious: Yes (Hospitalization, Other)
  Sender: FDA-Public Use
  Company Number: PHHY2013GB096710

PATIENT
  Age: 87 Year
  Sex: Female

DRUGS (11)
  1. AMOXICILLIN [Suspect]
     Indication: URINARY TRACT INFECTION
     Dosage: 250 MG, TID ACUTE COURSE
     Route: 048
     Dates: start: 20121130, end: 20121201
  2. OLANZAPINE [Concomitant]
     Dosage: 5 MG, QD AT NIGHT
  3. DIAZEPAM [Concomitant]
     Dosage: 2 MG, QD IN THE MORNING
  4. RANITIDINE [Concomitant]
     Dosage: 150 MG, BID
  5. BETAHISTINE [Concomitant]
     Dosage: 16 MG, BID
  6. FELODIPINE [Concomitant]
     Dosage: 2.5 MG, QD IN THE MORNING
  7. CO-CODAMOL [Concomitant]
  8. PROPRANOLOL [Concomitant]
     Dosage: 10 MG, UNK
  9. TEMAZEPAM [Concomitant]
     Dosage: 20 MG, UNK
  10. IBUPROFEN [Concomitant]
     Dosage: 200 MG, UNK
  11. MEBEVERINE [Concomitant]

REACTIONS (3)
  - Confusional state [Unknown]
  - Hypophagia [Unknown]
  - Treatment failure [Unknown]
